FAERS Safety Report 24533564 (Version 1)
Quarter: 2024Q4

REPORT INFORMATION
  Report Type: Spontaneous
  Country: CN (occurrence: CN)
  Receive Date: 20241022
  Receipt Date: 20241022
  Transmission Date: 20250114
  Serious: Yes (Other)
  Sender: ABBVIE
  Company Number: CN-ABBVIE-5968100

PATIENT
  Age: 53 Year
  Sex: Female
  Weight: 46 kg

DRUGS (2)
  1. VENETOCLAX [Suspect]
     Active Substance: VENETOCLAX
     Indication: Neoplasm malignant
     Dosage: 200 MILLIGRAM
     Route: 048
     Dates: start: 20240919, end: 20241002
  2. AZACITIDINE [Suspect]
     Active Substance: AZACITIDINE
     Indication: Neoplasm malignant
     Dosage: 100 MILLIGRAM
     Route: 058
     Dates: start: 20240919, end: 20240925

REACTIONS (2)
  - White blood cell count decreased [Recovered/Resolved]
  - Neutrophil count decreased [Recovered/Resolved]

NARRATIVE: CASE EVENT DATE: 20241005
